FAERS Safety Report 10331457 (Version 1)
Quarter: 2014Q3

REPORT INFORMATION
  Report Type: Spontaneous
  Country: US (occurrence: None)
  Receive Date: 20140718
  Receipt Date: 20140718
  Transmission Date: 20150326
  Serious: Yes (Other)
  Sender: FDA-Public Use
  Company Number: 2014US0305

PATIENT
  Age: 20 Year
  Sex: Female
  Weight: 48.53 kg

DRUGS (1)
  1. ORFADIN [Suspect]
     Active Substance: NITISINONE
     Indication: TYROSINAEMIA
     Route: 048
     Dates: start: 1994

REACTIONS (1)
  - Attention deficit/hyperactivity disorder [None]

NARRATIVE: CASE EVENT DATE: 1999
